FAERS Safety Report 21280620 (Version 1)
Quarter: 2022Q3

REPORT INFORMATION
  Report Type: Spontaneous
  Country: US (occurrence: US)
  Receive Date: 20220901
  Receipt Date: 20220901
  Transmission Date: 20221026
  Serious: Yes (Other)
  Sender: FDA-Public Use
  Company Number: US-MYLANLABS-2022M1090207

PATIENT
  Age: 47 Year
  Sex: Male

DRUGS (4)
  1. PREDNISONE [Suspect]
     Active Substance: PREDNISONE
     Indication: Arthritis reactive
     Dosage: UNK, HIGH DOSE
     Route: 065
  2. METHYLPREDNISOLONE [Suspect]
     Active Substance: METHYLPREDNISOLONE
     Indication: Arthritis reactive
     Dosage: UNK
     Route: 042
  3. SULFASALAZINE [Suspect]
     Active Substance: SULFASALAZINE
     Indication: Arthritis reactive
     Dosage: UNK, MAXIMUM DOSE
     Route: 065
  4. SULFASALAZINE [Suspect]
     Active Substance: SULFASALAZINE
     Dosage: UNK
     Route: 065

REACTIONS (3)
  - Drug ineffective [Unknown]
  - Synovitis [Unknown]
  - Rash [Unknown]
